FAERS Safety Report 9458768 (Version 5)
Quarter: 2014Q1

REPORT INFORMATION
  Report Type: Spontaneous
  Country: IT (occurrence: IT)
  Receive Date: 20130814
  Receipt Date: 20140310
  Transmission Date: 20141002
  Serious: Yes (Hospitalization)
  Sender: FDA-Public Use
  Company Number: IT-VERTEX PHARMACEUTICALS INC-2013-008760

PATIENT
  Age: 63 Year
  Sex: Male
  Weight: 92 kg

DRUGS (4)
  1. INCIVO [Suspect]
     Indication: HEPATIC CIRRHOSIS
     Dosage: 2250 MG, QD
     Route: 048
     Dates: start: 20130423, end: 20130716
  2. INCIVO [Suspect]
     Indication: HEPATITIS C
     Route: 048
     Dates: start: 20130425
  3. PEGASYS [Suspect]
     Indication: CHRONIC HEPATITIS C
     Dosage: DOSAGE FORM: INJECTION
     Route: 058
     Dates: start: 20130423, end: 20130731
  4. COPEGUS [Suspect]
     Indication: CHRONIC HEPATITIS C
     Dosage: DOSAGE FORM: TABLET
     Route: 048
     Dates: start: 20130423, end: 20130802

REACTIONS (2)
  - Pneumonia [Not Recovered/Not Resolved]
  - Anaemia [Recovered/Resolved]
